FAERS Safety Report 8836769 (Version 1)
Quarter: 2012Q4

REPORT INFORMATION
  Report Type: 
  Country: US (occurrence: US)
  Receive Date: 20121012
  Receipt Date: 20121012
  Transmission Date: 20130627
  Serious: No
  Sender: FDA-Public Use
  Company Number: US-B.I. PHARMACEUTICALS,INC./RIDGEFIELD-2012-BP-23939BP

PATIENT
  Age: 78 Year
  Sex: Male
  Weight: 95 kg

DRUGS (6)
  1. PRADAXA [Suspect]
     Indication: CEREBROVASCULAR ACCIDENT PROPHYLAXIS
     Dosage: 300 mg
     Route: 048
     Dates: start: 20120917, end: 20120924
  2. PRADAXA [Suspect]
     Dosage: 150 mg
     Route: 048
     Dates: start: 20120924
  3. LISINOPRIL [Concomitant]
     Indication: HYPERTENSION
     Dosage: 20 mg
     Route: 048
     Dates: start: 2007
  4. METOPROLOL [Concomitant]
     Indication: HYPERTENSION
     Dosage: 100 mg
     Route: 048
     Dates: start: 2006
  5. SIMVASTATIN [Concomitant]
     Indication: BLOOD CHOLESTEROL INCREASED
     Dosage: 40 mg
     Route: 048
     Dates: start: 2007
  6. AMLODIPINE [Concomitant]
     Indication: HYPERTENSION
     Dosage: 5 mg
     Route: 048
     Dates: start: 2007

REACTIONS (1)
  - Blood viscosity increased [Not Recovered/Not Resolved]
